FAERS Safety Report 6009946-4 (Version None)
Quarter: 2008Q4

REPORT INFORMATION
  Report Type: 
  Country: None (occurrence: None)
  Receive Date: 20081216
  Receipt Date: 20081208
  Transmission Date: 20090506
  Serious: Yes (Other)
  Sender: FDA-Public Use
  Company Number: CHPA2008IE21932

PATIENT
  Sex: Male

DRUGS (2)
  1. SCOPOLAMINE [Suspect]
     Dosage: TRANSDERMAL
     Route: 062
     Dates: start: 20081203
  2. DIGOXIN [Concomitant]

REACTIONS (1)
  - ARRHYTHMIA [None]
